FAERS Safety Report 25708943 (Version 1)
Quarter: 2025Q3

REPORT INFORMATION
  Report Type: Spontaneous
  Country: US (occurrence: US)
  Receive Date: 20250821
  Receipt Date: 20250821
  Transmission Date: 20251021
  Serious: No
  Sender: ELI LILLY AND COMPANY
  Company Number: US-ELI_LILLY_AND_COMPANY-US202508015026

PATIENT
  Age: 39 Year
  Sex: Female

DRUGS (8)
  1. ZEPBOUND [Suspect]
     Active Substance: TIRZEPATIDE
     Indication: Weight control
     Route: 065
     Dates: start: 20250809
  2. ZEPBOUND [Suspect]
     Active Substance: TIRZEPATIDE
     Indication: Weight control
     Route: 065
     Dates: start: 20250809
  3. ZEPBOUND [Suspect]
     Active Substance: TIRZEPATIDE
     Indication: Weight control
     Route: 065
     Dates: start: 20250809
  4. ZEPBOUND [Suspect]
     Active Substance: TIRZEPATIDE
     Indication: Weight control
     Route: 065
     Dates: start: 20250809
  5. ZEPBOUND [Suspect]
     Active Substance: TIRZEPATIDE
     Indication: Inflammation
  6. ZEPBOUND [Suspect]
     Active Substance: TIRZEPATIDE
     Indication: Inflammation
  7. ZEPBOUND [Suspect]
     Active Substance: TIRZEPATIDE
     Indication: Inflammation
  8. ZEPBOUND [Suspect]
     Active Substance: TIRZEPATIDE
     Indication: Inflammation

REACTIONS (3)
  - Pain of skin [Not Recovered/Not Resolved]
  - Myalgia [Not Recovered/Not Resolved]
  - Pain [Not Recovered/Not Resolved]

NARRATIVE: CASE EVENT DATE: 20250810
